FAERS Safety Report 6602678-0 (Version None)
Quarter: 2010Q1

REPORT INFORMATION
  Report Type: 
  Country: None (occurrence: None)
  Receive Date: 20100218
  Receipt Date: 20100126
  Transmission Date: 20100710
  Serious: Yes (Other)
  Sender: FDA-Public Use
  Company Number: JPI-P-009575

PATIENT
  Age: 52 Year
  Sex: Female
  Weight: 141.9759 kg

DRUGS (3)
  1. XYREM [Suspect]
     Indication: NARCOLEPSY
     Dosage: 4.5 GM (2.25 GM,2 IN 1 D),ORAL ; 4.5 GM (2.25 GM,2 IN 1 D),ORAL
     Route: 048
     Dates: start: 20031201, end: 20070101
  2. XYREM [Suspect]
     Indication: NARCOLEPSY
     Dosage: 4.5 GM (2.25 GM,2 IN 1 D),ORAL ; 4.5 GM (2.25 GM,2 IN 1 D),ORAL
     Route: 048
     Dates: start: 20080101
  3. CELECOXIB [Concomitant]

REACTIONS (6)
  - MIDDLE INSOMNIA [None]
  - PERIPHERAL ARTERIAL OCCLUSIVE DISEASE [None]
  - PULSE ABSENT [None]
  - ROAD TRAFFIC ACCIDENT [None]
  - UPPER LIMB FRACTURE [None]
  - WRIST FRACTURE [None]
